FAERS Safety Report 4450717-8 (Version None)
Quarter: 2004Q3

REPORT INFORMATION
  Report Type: 
  Country: None (occurrence: None)
  Receive Date: 20040914
  Receipt Date: 20040914
  Transmission Date: 20050211
  Serious: Yes (Death, Life-Threatening, Hospitalization)
  Sender: FDA-Public Use
  Company Number: None

PATIENT
  Age: 60 Year
  Sex: Female
  Weight: 104.9 kg

DRUGS (13)
  1. GEMCITABINE [Suspect]
     Indication: PANCREATIC CARCINOMA
     Dosage: 1500 MG/M2 Q WEEK
     Dates: start: 20040727, end: 20040907
  2. NEXIUM [Concomitant]
  3. DURAGESIC [Concomitant]
  4. REGLAN [Concomitant]
  5. AMBIEN [Concomitant]
  6. ZOFRAN ODT [Concomitant]
  7. OXYCODINE IR [Concomitant]
  8. COLACE [Concomitant]
  9. NEUPOGEN [Concomitant]
  10. ARANESP [Concomitant]
  11. PERI-COLACE [Concomitant]
  12. POTASSIUM [Concomitant]
  13. FLUIDS W. EXTRA POTASSIUM [Concomitant]

REACTIONS (4)
  - DEHYDRATION [None]
  - HYPOTENSION [None]
  - NAUSEA [None]
  - VOMITING [None]
